FAERS Safety Report 12135136 (Version 1)
Quarter: 2016Q1

REPORT INFORMATION
  Report Type: Spontaneous
  Country: US (occurrence: US)
  Receive Date: 20160301
  Receipt Date: 20160301
  Transmission Date: 20160526
  Serious: Yes (Hospitalization)
  Sender: FDA-Public Use
  Company Number: US-JAZZ-2016-US-003800

PATIENT
  Age: 39 Year
  Sex: Female

DRUGS (1)
  1. XYREM [Suspect]
     Active Substance: SODIUM OXYBATE
     Indication: PRODUCT USED FOR UNKNOWN INDICATION
     Route: 048

REACTIONS (6)
  - Lethargy [Recovered/Resolved]
  - Electrolyte imbalance [Recovered/Resolved]
  - Suicide attempt [Unknown]
  - Bradycardia [Recovered/Resolved]
  - Somnolence [Recovered/Resolved]
  - Conduction disorder [Recovered/Resolved]
